FAERS Safety Report 4284907-4 (Version None)
Quarter: 2004Q1

REPORT INFORMATION
  Report Type: 
  Country: None (occurrence: None)
  Receive Date: 20040202
  Receipt Date: 20040119
  Transmission Date: 20041129
  Serious: Yes (Other)
  Sender: FDA-Public Use
  Company Number: 04-016-0092

PATIENT
  Age: 35 Year
  Sex: Female
  Weight: 81.6475 kg

DRUGS (3)
  1. DOXORUBICIN HCL [Suspect]
     Indication: BREAST CANCER
     Dosage: 190 MG IV X 1
     Dates: start: 20040119
  2. CYTOXAN [Concomitant]
  3. FLUOROURACIL [Concomitant]

REACTIONS (1)
  - ACCIDENTAL OVERDOSE [None]
